FAERS Safety Report 11151516 (Version 1)
Quarter: 2015Q2

REPORT INFORMATION
  Report Type: Report from Study
  Country: US (occurrence: US)
  Receive Date: 20150601
  Receipt Date: 20150601
  Transmission Date: 20150821
  Serious: Yes (Hospitalization)
  Sender: FDA-Public Use
  Company Number: US-BIOGENIDEC-2015BI070975

PATIENT
  Age: 59 Year
  Sex: Male

DRUGS (19)
  1. FENOFIBRATE. [Concomitant]
     Active Substance: FENOFIBRATE
  2. LEVOTHYROXIN [Concomitant]
     Active Substance: LEVOTHYROXINE
  3. TECFIDERA [Suspect]
     Active Substance: DIMETHYL FUMARATE
     Indication: MULTIPLE SCLEROSIS
     Route: 048
     Dates: start: 20150508
  4. GEMFIBROZIL. [Concomitant]
     Active Substance: GEMFIBROZIL
  5. HYOSCYAMINE [Concomitant]
     Active Substance: HYOSCYAMINE
  6. TOLTERODINE [Concomitant]
     Active Substance: TOLTERODINE
  7. VITAMIN D [Concomitant]
     Active Substance: CHOLECALCIFEROL
  8. SULFAMETHOXAZOLE AND TRIMETHOPRIM DOUBLE STRENGTH [Concomitant]
     Active Substance: SULFAMETHOXAZOLE\TRIMETHOPRIM
  9. BACLOFEN. [Concomitant]
     Active Substance: BACLOFEN
  10. FUROSEMIDE. [Concomitant]
     Active Substance: FUROSEMIDE
  11. DETROL LA [Concomitant]
     Active Substance: TOLTERODINE TARTRATE
  12. VIMPAT [Concomitant]
     Active Substance: LACOSAMIDE
  13. SEPTRA [Concomitant]
     Active Substance: SULFAMETHOXAZOLE\TRIMETHOPRIM
  14. LASIX [Concomitant]
     Active Substance: FUROSEMIDE
  15. CITALOPRAM [Concomitant]
     Active Substance: CITALOPRAM HYDROBROMIDE
  16. AMPYRA [Concomitant]
     Active Substance: DALFAMPRIDINE
  17. VERAPAMIL [Concomitant]
     Active Substance: VERAPAMIL HYDROCHLORIDE
  18. SIMVASTIN [Concomitant]
     Active Substance: SIMVASTATIN
  19. ALLOPURINOL. [Concomitant]
     Active Substance: ALLOPURINOL

REACTIONS (3)
  - Acute kidney injury [Not Recovered/Not Resolved]
  - Fungal infection [Not Recovered/Not Resolved]
  - Bacterial infection [Not Recovered/Not Resolved]

NARRATIVE: CASE EVENT DATE: 201505
